FAERS Safety Report 21784549 (Version 1)
Quarter: 2022Q4

REPORT INFORMATION
  Report Type: Spontaneous
  Country: JP (occurrence: JP)
  Receive Date: 20221227
  Receipt Date: 20221227
  Transmission Date: 20230113
  Serious: Yes (Hospitalization)
  Sender: FDA-Public Use
  Company Number: JP-TEVA-2022-JP-2840267

PATIENT
  Age: 82 Year
  Sex: Male

DRUGS (1)
  1. PREDNISOLONE [Suspect]
     Active Substance: PREDNISOLONE
     Indication: Idiopathic interstitial pneumonia
     Dosage: RECEIVED WITH GRADUAL TAPERING
     Route: 048

REACTIONS (2)
  - Pneumomediastinum [Recovering/Resolving]
  - Blood pressure systolic inspiratory decreased [Recovered/Resolved]
